FAERS Safety Report 14844584 (Version 2)
Quarter: 2018Q3

REPORT INFORMATION
  Report Type: Spontaneous
  Country: AU (occurrence: AU)
  Receive Date: 20180503
  Receipt Date: 20180803
  Transmission Date: 20181010
  Serious: Yes (Other)
  Sender: FDA-Public Use
  Company Number: AU-BRISTOL-MYERS SQUIBB COMPANY-BMS-2018-038691

PATIENT
  Age: 47 Year
  Sex: Male

DRUGS (1)
  1. NIVOLUMAB [Suspect]
     Active Substance: NIVOLUMAB
     Indication: LUNG ADENOCARCINOMA STAGE III
     Dosage: UNAVAILABLE
     Route: 065
     Dates: start: 201710

REACTIONS (4)
  - Malignant neoplasm progression [Unknown]
  - Pneumocystis jirovecii pneumonia [Unknown]
  - Pneumonitis [Unknown]
  - Pulmonary tuberculosis [Unknown]
